FAERS Safety Report 9654430 (Version 1)
Quarter: 2013Q4

REPORT INFORMATION
  Report Type: Spontaneous
  Country: ES (occurrence: ES)
  Receive Date: 20131029
  Receipt Date: 20131029
  Transmission Date: 20140711
  Serious: Yes (Other)
  Sender: FDA-Public Use
  Company Number: PHHY2013ES122168

PATIENT
  Age: 33 Year
  Sex: Male

DRUGS (1)
  1. EXTAVIA [Suspect]
     Indication: MULTIPLE SCLEROSIS
     Dosage: 250 UG, BID
     Route: 058
     Dates: start: 20130211, end: 20130211

REACTIONS (1)
  - Infusion site cellulitis [Recovered/Resolved]
